FAERS Safety Report 10084914 (Version 1)
Quarter: 2014Q2

REPORT INFORMATION
  Report Type: Spontaneous
  Country: US (occurrence: None)
  Receive Date: 20140404
  Receipt Date: 20140404
  Transmission Date: 20141212
  Serious: Yes (Other)
  Sender: FDA-Public Use
  Company Number: 1355992

PATIENT
  Sex: Female

DRUGS (4)
  1. PERJETA [Suspect]
     Indication: BREAST CANCER
  2. HERCEPTIN (TRASTUZUMAB) [Suspect]
     Indication: BREAST CANCER
  3. TAXOTERE (DOCETAXEL) [Concomitant]
  4. CARBOPLATIN [Concomitant]

REACTIONS (2)
  - Diarrhoea [None]
  - Pyrexia [None]
